FAERS Safety Report 8085116-3 (Version None)
Quarter: 2012Q1

REPORT INFORMATION
  Report Type: 
  Country: None (occurrence: None)
  Receive Date: 20120128
  Receipt Date: 20110314
  Transmission Date: 20120608
  Serious: No
  Sender: FDA-Public Use
  Company Number: US-ABBOTT-11P-163-0711516-00

PATIENT
  Sex: Female
  Weight: 78.542 kg

DRUGS (2)
  1. HUMIRA [Suspect]
     Indication: RHEUMATOID ARTHRITIS
     Dates: start: 20110114, end: 20110301
  2. PREDNISONE TAB [Concomitant]
     Indication: RHEUMATOID ARTHRITIS

REACTIONS (1)
  - PSORIASIS [None]
